FAERS Safety Report 4571737-9 (Version None)
Quarter: 2005Q1

REPORT INFORMATION
  Report Type: 
  Country: None (occurrence: None)
  Receive Date: 20050202
  Receipt Date: 20050202
  Transmission Date: 20050727
  Serious: Yes (Hospitalization)
  Sender: FDA-Public Use
  Company Number: None

PATIENT
  Sex: Female
  Weight: 84.8226 kg

DRUGS (6)
  1. CISPLATIN [Suspect]
     Indication: LARYNGEAL CANCER
     Dosage: 200 MG   Q 21 DAYS X 3   INTRAVENOU
     Route: 042
     Dates: start: 20041117, end: 20041229
  2. SYNTHROID [Concomitant]
  3. NEXIUM [Concomitant]
  4. ZOFRAN [Concomitant]
  5. COMPAZINE [Concomitant]
  6. ATIVAN [Concomitant]

REACTIONS (6)
  - BLOOD ELECTROLYTES ABNORMAL [None]
  - DEHYDRATION [None]
  - DIARRHOEA [None]
  - NAUSEA [None]
  - RESPIRATORY ALKALOSIS [None]
  - VOMITING [None]
